FAERS Safety Report 8938542 (Version 2)
Quarter: 2013Q1

REPORT INFORMATION
  Report Type: Report from Study
  Country: ZA (occurrence: ZA)
  Receive Date: 20121130
  Receipt Date: 20130107
  Transmission Date: 20140127
  Serious: Yes (Other)
  Sender: FDA-Public Use
  Company Number: ZA-ABBOTT-12P-143-1011713-00

PATIENT
  Age: 15 Year
  Sex: Male
  Weight: 55.8 kg

DRUGS (4)
  1. RITONAVIR [Suspect]
     Indication: HIV INFECTION
     Route: 048
     Dates: start: 20060413, end: 20121115
  2. BMS 232632 [Concomitant]
     Indication: HIV INFECTION
     Dates: start: 20060413, end: 20121115
  3. STAVUDINE [Concomitant]
     Indication: HIV INFECTION
     Dates: start: 20060413, end: 20121115
  4. LAMIVUDINE [Concomitant]
     Indication: HIV INFECTION
     Dates: start: 20060413, end: 20121115

REACTIONS (2)
  - Blood bilirubin increased [Unknown]
  - Blood bilirubin unconjugated increased [Unknown]
